FAERS Safety Report 4696875-1 (Version None)
Quarter: 2005Q2

REPORT INFORMATION
  Report Type: 
  Country: None (occurrence: None)
  Receive Date: 20050622
  Receipt Date: 20050526
  Transmission Date: 20051028
  Serious: Yes (Hospitalization)
  Sender: FDA-Public Use
  Company Number: US-AMGEN-US135917

PATIENT
  Sex: Male

DRUGS (10)
  1. ENBREL [Suspect]
     Indication: RHEUMATOID ARTHRITIS
     Route: 058
     Dates: start: 20021205
  2. ENBREL [Suspect]
     Route: 058
     Dates: start: 20050101
  3. METHOTREXATE [Suspect]
     Route: 048
     Dates: start: 19980701, end: 20050101
  4. METHOTREXATE [Suspect]
     Route: 048
     Dates: start: 20050406
  5. PREDNISONE TAB [Concomitant]
     Route: 048
     Dates: start: 20050401
  6. OXYCONTIN [Concomitant]
     Dates: start: 20050401
  7. PREVACID [Concomitant]
     Dates: start: 19980101
  8. CARDURA [Concomitant]
  9. PRINIVIL [Concomitant]
  10. EFFEXOR [Concomitant]
     Dates: start: 20050401

REACTIONS (6)
  - CULTURE URINE POSITIVE [None]
  - PROTEUS INFECTION [None]
  - PYELONEPHRITIS [None]
  - STAPHYLOCOCCAL OSTEOMYELITIS [None]
  - STREPTOCOCCAL BACTERAEMIA [None]
  - SYSTEMIC INFLAMMATORY RESPONSE SYNDROME [None]
